FAERS Safety Report 21332624 (Version 1)
Quarter: 2022Q3

REPORT INFORMATION
  Report Type: Spontaneous
  Country: US (occurrence: US)
  Receive Date: 20220914
  Receipt Date: 20220914
  Transmission Date: 20221027
  Serious: No
  Sender: FDA-Public Use
  Company Number: US-GALDERMA-US2022011701

PATIENT

DRUGS (12)
  1. PROACTIV MD ADAPALENE ACNE TREATMENT [Suspect]
     Active Substance: ADAPALENE
     Indication: Skin hyperpigmentation
     Dosage: 1 DOSAGE FORM, QD
     Route: 061
     Dates: start: 202204, end: 202208
  2. PROACTIV MD ADAPALENE ACNE TREATMENT [Suspect]
     Active Substance: ADAPALENE
     Indication: Seborrhoea
  3. Proactiv MD Ultra Gentle Cleanser [Concomitant]
     Indication: Skin hyperpigmentation
     Dosage: 1 DOSAGE FORM, BID
     Route: 061
     Dates: start: 202204, end: 202208
  4. Proactiv MD Ultra Gentle Cleanser [Concomitant]
     Indication: Seborrhoea
  5. Proactiv MD Ultra Hydrating Moisturizer [Concomitant]
     Indication: Skin hyperpigmentation
     Dosage: 1 DOSAGE FORM, BID
     Route: 061
     Dates: start: 202204, end: 202208
  6. Proactiv MD Ultra Hydrating Moisturizer [Concomitant]
     Indication: Seborrhoea
  7. PROACTIV ACNE BODY WASH [Concomitant]
     Active Substance: SALICYLIC ACID
     Indication: Skin hyperpigmentation
     Dosage: 1 DOSAGE FORM, BID
     Route: 061
     Dates: start: 202204, end: 202208
  8. PROACTIV ACNE BODY WASH [Concomitant]
     Active Substance: SALICYLIC ACID
     Indication: Seborrhoea
  9. Proactiv Amazonian Clay Mask [Concomitant]
     Indication: Skin hyperpigmentation
     Dosage: 1 DOSAGE FORM, BID
     Route: 061
     Dates: start: 202204, end: 202208
  10. Proactiv Amazonian Clay Mask [Concomitant]
     Indication: Seborrhoea
  11. Proactiv Post Acne Scar Gel [Concomitant]
     Indication: Skin hyperpigmentation
     Dosage: 1 DOSAGE FORM, BID
     Route: 061
     Dates: start: 202204, end: 202208
  12. Proactiv Post Acne Scar Gel [Concomitant]
     Indication: Seborrhoea

REACTIONS (3)
  - Acne [Unknown]
  - Product use in unapproved indication [Recovered/Resolved]
  - Drug ineffective for unapproved indication [Recovered/Resolved]

NARRATIVE: CASE EVENT DATE: 20220101
